FAERS Safety Report 18480864 (Version 2)
Quarter: 2020Q4

REPORT INFORMATION
  Report Type: Spontaneous
  Country: FR (occurrence: FR)
  Receive Date: 20201109
  Receipt Date: 20201203
  Transmission Date: 20210114
  Serious: Yes (Life-Threatening, Other)
  Sender: FDA-Public Use
  Company Number: FR-AMGEN-FRASP2020178115

PATIENT
  Age: 5 Year
  Sex: Female
  Weight: 21.5 kg

DRUGS (5)
  1. VANCOMYCINE [VANCOMYCIN] [Concomitant]
     Active Substance: VANCOMYCIN
     Indication: INFECTION PROPHYLAXIS
     Dosage: 200 MILLIGRAM, QID
     Dates: start: 20201015
  2. BLINCYTO [Suspect]
     Active Substance: BLINATUMOMAB
     Dosage: 48 MICROGRAM OVER 96 HOURS
     Route: 042
     Dates: end: 20201017
  3. CEFTAZIDIME. [Concomitant]
     Active Substance: CEFTAZIDIME
     Indication: INFECTION PROPHYLAXIS
     Dosage: 1100 MILLIGRAM, BID
     Dates: start: 20201015
  4. BLINCYTO [Suspect]
     Active Substance: BLINATUMOMAB
     Indication: B PRECURSOR TYPE ACUTE LEUKAEMIA
     Dosage: 15 MICROGRAM/SQ. METER, QD
     Route: 042
     Dates: start: 20201015
  5. NIDREL [Concomitant]
     Active Substance: NITRENDIPINE
     Indication: HYPERTENSION
     Dosage: 5 MILLIGRAM, BID
     Dates: start: 20201015

REACTIONS (4)
  - Neurotoxicity [Unknown]
  - Status epilepticus [Recovered/Resolved]
  - Toxic encephalopathy [Unknown]
  - Hallucination [Unknown]

NARRATIVE: CASE EVENT DATE: 20201016
